FAERS Safety Report 9993963 (Version 1)
Quarter: 2014Q1

REPORT INFORMATION
  Report Type: Spontaneous
  Country: US (occurrence: US)
  Receive Date: 20140310
  Receipt Date: 20140310
  Transmission Date: 20141002
  Serious: Yes (Other)
  Sender: FDA-Public Use
  Company Number: US-AMGEN-USASP2013055563

PATIENT
  Age: 51 Year
  Sex: Male

DRUGS (1)
  1. SENSIPAR [Suspect]
     Indication: HYPERPARATHYROIDISM SECONDARY
     Dosage: 180 MG, QHS
     Route: 065

REACTIONS (1)
  - Convulsion [Unknown]
